FAERS Safety Report 9773161 (Version 3)
Quarter: 2014Q1

REPORT INFORMATION
  Report Type: Spontaneous
  Country: US (occurrence: US)
  Receive Date: 20131219
  Receipt Date: 20140227
  Transmission Date: 20141002
  Serious: No
  Sender: FDA-Public Use
  Company Number: US-PFIZER INC-2013361425

PATIENT
  Age: 62 Year
  Sex: Male
  Weight: 81.63 kg

DRUGS (8)
  1. XELJANZ [Suspect]
     Indication: RHEUMATOID ARTHRITIS
     Dosage: 5 MG, 2X/DAY
     Route: 048
     Dates: start: 20131015
  2. PREDNISONE [Suspect]
     Indication: RHEUMATOID ARTHRITIS
     Dosage: 5 MG, UNK
  3. PREDNISONE [Suspect]
     Dosage: 2.5 MG, QD
  4. CENTRUM MULTIVITAMINS [Concomitant]
     Dosage: UNK
  5. CITRACAL [Concomitant]
     Dosage: UNK
  6. VITAMIN D3 [Concomitant]
     Dosage: UNK
  7. NAPROXEN [Concomitant]
     Indication: ANTIINFLAMMATORY THERAPY
     Dosage: 500 MG, BID
  8. NEXIUM [Concomitant]
     Dosage: UNK

REACTIONS (6)
  - Respiratory tract congestion [Not Recovered/Not Resolved]
  - Immune system disorder [Not Recovered/Not Resolved]
  - Upper respiratory tract infection [Unknown]
  - Diarrhoea [Unknown]
  - White blood cell count decreased [Unknown]
  - Nausea [Unknown]
